FAERS Safety Report 22321639 (Version 1)
Quarter: 2023Q2

REPORT INFORMATION
  Report Type: Report from Study
  Country: US (occurrence: US)
  Receive Date: 20230515
  Receipt Date: 20230515
  Transmission Date: 20230721
  Serious: Yes (Other)
  Sender: FDA-Public Use
  Company Number: US-ABBVIE-4286863

PATIENT
  Age: 69 Year
  Sex: Female

DRUGS (11)
  1. HUMIRA [Suspect]
     Active Substance: ADALIMUMAB
     Indication: Colitis ulcerative
     Dosage: 40 MILLIGRAM?CITRATE FREE
     Route: 058
     Dates: start: 202003
  2. HUMIRA [Suspect]
     Active Substance: ADALIMUMAB
     Indication: Arthritis
  3. VOLTAREN [Concomitant]
     Active Substance: DICLOFENAC SODIUM
     Indication: Pain
  4. BIOFREEZE [Concomitant]
     Active Substance: MENTHOL
     Indication: Arthralgia
  5. LISINOPRIL [Concomitant]
     Active Substance: LISINOPRIL
     Indication: Blood pressure measurement
  6. METOPROLOL [Concomitant]
     Active Substance: METOPROLOL
     Indication: Blood pressure measurement
  7. LEVOXYL [Concomitant]
     Active Substance: LEVOTHYROXINE SODIUM
     Indication: Thyroiditis
  8. FAMOTIDINE [Concomitant]
     Active Substance: FAMOTIDINE
     Indication: Gastrooesophageal reflux disease
  9. VITAMIN D3 [Concomitant]
     Active Substance: CHOLECALCIFEROL
     Indication: Supplementation therapy
  10. TYLENOL [Concomitant]
     Active Substance: ACETAMINOPHEN
     Indication: Pain
  11. THYROID [Concomitant]
     Active Substance: LEVOTHYROXINE\LIOTHYRONINE
     Indication: Product used for unknown indication

REACTIONS (8)
  - Knee arthroplasty [Unknown]
  - Arthralgia [Recovered/Resolved]
  - Drug level decreased [Not Recovered/Not Resolved]
  - Colitis [Unknown]
  - Cartilage injury [Unknown]
  - Therapeutic response shortened [Unknown]
  - Arthropathy [Unknown]
  - Arthralgia [Not Recovered/Not Resolved]

NARRATIVE: CASE EVENT DATE: 20221201
